FAERS Safety Report 7121167-0 (Version None)
Quarter: 2010Q4

REPORT INFORMATION
  Report Type: 
  Country: None (occurrence: None)
  Receive Date: 20101122
  Receipt Date: 20101122
  Transmission Date: 20110411
  Serious: Yes (Death, Life-Threatening, Hospitalization)
  Sender: FDA-Public Use
  Company Number: None

PATIENT
  Age: 64 Year
  Sex: Female

DRUGS (8)
  1. NITROFURANTOIN [Suspect]
     Indication: URINARY TRACT INFECTION
     Dosage: 100 MG DAILY PO
     Route: 048
  2. SYNTHROID [Concomitant]
  3. FENOFIBRATE [Concomitant]
  4. SIMVASTATIN [Concomitant]
  5. PROZAC [Concomitant]
  6. TOPROL-XL [Concomitant]
  7. GABAPENTIN [Concomitant]
  8. MULTI-VITAMIN [Concomitant]

REACTIONS (2)
  - INTERSTITIAL LUNG DISEASE [None]
  - RESPIRATORY FAILURE [None]
